FAERS Safety Report 23994053 (Version 1)
Quarter: 2024Q2

REPORT INFORMATION
  Report Type: Spontaneous
  Country: TW (occurrence: TW)
  Receive Date: 20240620
  Receipt Date: 20240620
  Transmission Date: 20240716
  Serious: Yes (Life-Threatening, Hospitalization)
  Sender: FDA-Public Use
  Company Number: TW-BoehringerIngelheim-2024-BI-034955

PATIENT
  Sex: Male

DRUGS (6)
  1. EMPAGLIFLOZIN\METFORMIN HYDROCHLORIDE [Suspect]
     Active Substance: EMPAGLIFLOZIN\METFORMIN HYDROCHLORIDE
     Indication: Product used for unknown indication
     Dosage: EMPAGLIFLOZIN 12.5MG /METFORMIN 850MG TAB. 1#BID
  2. FLUIMUCIL [Suspect]
     Active Substance: ACETYLCYSTEINE
     Indication: Product used for unknown indication
     Route: 048
  3. DEXTROMETHORPHAN HYDROBROMIDE [Suspect]
     Active Substance: DEXTROMETHORPHAN HYDROBROMIDE
     Indication: Product used for unknown indication
     Route: 048
  4. SULAMPI [Concomitant]
     Indication: Product used for unknown indication
     Route: 042
  5. CALCIUM CARBONATE PRECIPITATE [Concomitant]
     Indication: Product used for unknown indication
  6. DEPAKINE SOLUTION [Concomitant]
     Indication: Product used for unknown indication
     Route: 048

REACTIONS (4)
  - Ketoacidosis [Recovered/Resolved]
  - Insomnia [Unknown]
  - Productive cough [Unknown]
  - Altered state of consciousness [Unknown]

NARRATIVE: CASE EVENT DATE: 20240605
